FAERS Safety Report 7993690-8 (Version None)
Quarter: 2011Q4

REPORT INFORMATION
  Report Type: 
  Country: None (occurrence: None)
  Receive Date: 20111219
  Receipt Date: 20111202
  Transmission Date: 20120403
  Serious: Yes (Other)
  Sender: FDA-Public Use
  Company Number: PHHY2011JP103656

PATIENT
  Age: 42 Year
  Sex: Female
  Weight: 63 kg

DRUGS (7)
  1. FUROSEMIDE [Concomitant]
     Indication: HYPERTENSION
     Dosage: 20 MG, UNK
  2. CYCLOPHOSPHAMIDE [Concomitant]
     Indication: BREAST CANCER
     Dosage: 600 MG/M2
  3. LOXOPROFEN [Concomitant]
     Indication: PAIN
     Dosage: 180 MG PER DAY
  4. EPIRUBICIN HYDROCHLORIDE [Concomitant]
     Indication: BREAST CANCER
     Dosage: 100 MG/M2
  5. OXYCODONE HYDROCHLORIDE [Concomitant]
     Indication: PAIN
     Dosage: 10 MG PER DAY
  6. VALSARTAN [Suspect]
     Indication: HYPERTENSION
     Dosage: 2.5 MG
     Route: 048
  7. DICLOFENAC [Suspect]
     Indication: PAIN
     Dosage: 50 MG
     Route: 054

REACTIONS (7)
  - SCLERODERMA [None]
  - MORPHOEA [None]
  - HAEMORRHAGE [None]
  - RENAL IMPAIRMENT [None]
  - METASTASES TO SKIN [None]
  - SCLERODERMA RENAL CRISIS [None]
  - METASTASES TO LIVER [None]
